FAERS Safety Report 25212786 (Version 1)
Quarter: 2025Q2

REPORT INFORMATION
  Report Type: Spontaneous
  Country: BR (occurrence: BR)
  Receive Date: 20250418
  Receipt Date: 20250418
  Transmission Date: 20250716
  Serious: Yes (Other)
  Sender: ANI
  Company Number: BR-ANIPHARMA-022331

PATIENT
  Sex: Male
  Weight: 74 kg

DRUGS (1)
  1. FLUVOXAMINE MALEATE [Suspect]
     Active Substance: FLUVOXAMINE MALEATE
     Indication: Depression
     Route: 048
     Dates: start: 2015, end: 202503

REACTIONS (22)
  - Suicidal ideation [Unknown]
  - Withdrawal syndrome [Unknown]
  - Malaise [Unknown]
  - Negative thoughts [Unknown]
  - Tremor [Unknown]
  - Product dose omission issue [Unknown]
  - Depressed mood [Unknown]
  - Insomnia [Unknown]
  - Vomiting [Unknown]
  - Decreased interest [Unknown]
  - Decreased appetite [Unknown]
  - Somnolence [Unknown]
  - Fatigue [Unknown]
  - Impaired work ability [Unknown]
  - Nausea [Unknown]
  - Visual impairment [Unknown]
  - Unevaluable event [Unknown]
  - Therapy cessation [Unknown]
  - Loss of personal independence in daily activities [Unknown]
  - Depression [Unknown]
  - Product quality issue [Unknown]
  - Product use issue [Unknown]
